FAERS Safety Report 10232318 (Version 1)
Quarter: 2014Q2

REPORT INFORMATION
  Report Type: Spontaneous
  Country: US (occurrence: None)
  Receive Date: 20140610
  Receipt Date: 20140610
  Transmission Date: 20141212
  Serious: Yes (Other)
  Sender: FDA-Public Use
  Company Number: None

PATIENT
  Age: 58 Year
  Sex: Female

DRUGS (1)
  1. AFINITOR 10MG NOVARTIS [Suspect]
     Indication: BREAST CANCER
     Dosage: 1 TABLET, QD, ORAL
     Route: 048
     Dates: start: 20131220, end: 20140529

REACTIONS (2)
  - Drug ineffective [None]
  - Disease progression [None]
